FAERS Safety Report 24810690 (Version 2)
Quarter: 2025Q1

REPORT INFORMATION
  Report Type: Spontaneous
  Country: ES (occurrence: ES)
  Receive Date: 20250106
  Receipt Date: 20250114
  Transmission Date: 20250409
  Serious: Yes (Other)
  Sender: MAYNE
  Company Number: ES-MAYNE PHARMA-2024MYN000637

PATIENT

DRUGS (2)
  1. BIJUVA [Suspect]
     Active Substance: ESTRADIOL\PROGESTERONE
     Indication: Product used for unknown indication
     Dosage: 1 DOSAGE FORM EVERY 1 DAY(S) 1 PER DAY
     Route: 048
     Dates: start: 202409
  2. MELATONIN [Concomitant]
     Active Substance: MELATONIN
     Indication: Product used for unknown indication
     Route: 065

REACTIONS (1)
  - Colitis [Not Recovered/Not Resolved]

NARRATIVE: CASE EVENT DATE: 20241001
